FAERS Safety Report 10037456 (Version 1)
Quarter: 2014Q1

REPORT INFORMATION
  Report Type: Spontaneous
  Country: GB (occurrence: None)
  Receive Date: 20140324
  Receipt Date: 20140324
  Transmission Date: 20141002
  Serious: Yes (Other)
  Sender: FDA-Public Use
  Company Number: 2245281

PATIENT
  Age: 3 Year
  Sex: Female
  Weight: 20.9 kg

DRUGS (5)
  1. METHOTREXATE [Suspect]
     Indication: JUVENILE IDIOPATHIC ARTHRITIS
     Dosage: 12.5 MG MILLIGRAM(S) , 1 WEEK, 6 DAYS) SUBCUTANEOUS
     Route: 058
     Dates: start: 20140124, end: 20140130
  2. FOLIC ACID [Concomitant]
  3. IBUPROFEN [Concomitant]
  4. LANSOPRAZOLE [Concomitant]
  5. TRIAMCINOLONE [Concomitant]

REACTIONS (2)
  - Erythema [None]
  - Injection site vesicles [None]
